FAERS Safety Report 11889981 (Version 1)
Quarter: 2016Q1

REPORT INFORMATION
  Report Type: Spontaneous
  Country: US (occurrence: US)
  Receive Date: 20160105
  Receipt Date: 20160105
  Transmission Date: 20160526
  Serious: No
  Sender: FDA-Public Use
  Company Number: US-PERRIGO-15US011035

PATIENT
  Age: 62 Year
  Sex: Male
  Weight: 95.24 kg

DRUGS (3)
  1. GUAIFENESIN 600 MG 498 [Suspect]
     Active Substance: GUAIFENESIN
     Dosage: 1200 MG, EVERY 12 HOURS, PRN
     Route: 048
     Dates: start: 201510, end: 201510
  2. ANTIHYPERTENSIVES [Concomitant]
     Active Substance: UNSPECIFIED INGREDIENT
     Indication: HYPERTENSION
     Dosage: UNK
     Route: 048
     Dates: start: 2012
  3. GUAIFENESIN 600 MG 498 [Suspect]
     Active Substance: GUAIFENESIN
     Indication: NASOPHARYNGITIS
     Dosage: 1200 MG, EVERY 12 HOURS, PRN
     Route: 048
     Dates: start: 201503, end: 201503

REACTIONS (1)
  - Drug ineffective [Unknown]

NARRATIVE: CASE EVENT DATE: 201503
